FAERS Safety Report 5520413-4 (Version None)
Quarter: 2007Q4

REPORT INFORMATION
  Report Type: 
  Country: None (occurrence: None)
  Receive Date: 20071114
  Receipt Date: 20071101
  Transmission Date: 20080405
  Serious: Yes (Hospitalization)
  Sender: FDA-Public Use
  Company Number: GXKR2007US09447

PATIENT
  Age: 61 Year
  Sex: Female

DRUGS (4)
  1. SIMVASTATIN [Suspect]
     Indication: HYPERCHOLESTEROLAEMIA
     Dosage: 40 MG, QD; 80 MG, QD
  2. COLCHICUM JTL LIQ [Suspect]
     Indication: GOUT
     Dosage: 0.6 MG, BID,
  3. ACETYLSALICYLIC ACID SRT [Concomitant]
  4. HYDROCHLOROTHIAZIDE [Concomitant]

REACTIONS (4)
  - CONDITION AGGRAVATED [None]
  - DRUG INTERACTION [None]
  - HYPERCHOLESTEROLAEMIA [None]
  - RHABDOMYOLYSIS [None]
